FAERS Safety Report 4601863-7 (Version None)
Quarter: 2005Q1

REPORT INFORMATION
  Report Type: 
  Country: None (occurrence: None)
  Receive Date: 20050131
  Receipt Date: 20041229
  Transmission Date: 20050727
  Serious: No
  Sender: FDA-Public Use
  Company Number: 200419094US

PATIENT
  Sex: Female

DRUGS (2)
  1. KETEK [Suspect]
     Dosage: 800 MG
     Dates: start: 20041123, end: 20041128
  2. ZIPRASIDONE HYDROCHLORIDE (GEODON) [Suspect]
     Dosage: 60 MG BID

REACTIONS (1)
  - NERVOUSNESS [None]
